FAERS Safety Report 7644714-9 (Version None)
Quarter: 2011Q3

REPORT INFORMATION
  Report Type: 
  Country: None (occurrence: None)
  Receive Date: 20110729
  Receipt Date: 20110726
  Transmission Date: 20111222
  Serious: Yes (Life-Threatening, Disabling)
  Sender: FDA-Public Use
  Company Number: JP-ACTELION-A-CH2010-35411

PATIENT
  Sex: Female
  Weight: 48 kg

DRUGS (14)
  1. AMLODIPINE BESYLATE [Concomitant]
  2. GLIMEPIRIDE [Concomitant]
  3. ENALAPRIL MALEATE [Concomitant]
  4. AMBROXOL [Concomitant]
  5. VOGLIBOSE [Concomitant]
  6. DIGOXIN [Concomitant]
  7. TRACLEER [Suspect]
     Dosage: 62.5 MG, BID
     Route: 048
     Dates: start: 20061017, end: 20080204
  8. OMEPRAZOLE [Concomitant]
  9. WARFARIN SODIUM [Concomitant]
  10. LOSARTAN POTASSIUM [Concomitant]
  11. CANDESARTAN CILEXETIL [Concomitant]
  12. SENNOSIDE [Concomitant]
  13. TRACLEER [Suspect]
     Indication: PULMONARY ARTERIAL HYPERTENSION
     Dosage: 62.5 MG, QD
     Route: 048
     Dates: start: 20080205
  14. AZELNIDIPINE [Concomitant]

REACTIONS (6)
  - RENAL IMPAIRMENT [None]
  - HEPATIC FUNCTION ABNORMAL [None]
  - GAMMA-GLUTAMYLTRANSFERASE INCREASED [None]
  - CARDIAC FAILURE ACUTE [None]
  - HYPERKALAEMIA [None]
  - OEDEMA PERIPHERAL [None]
